FAERS Safety Report 7773984-1 (Version None)
Quarter: 2011Q3

REPORT INFORMATION
  Report Type: 
  Country: None (occurrence: None)
  Receive Date: 20110923
  Receipt Date: 20110909
  Transmission Date: 20111222
  Serious: Yes (Death)
  Sender: FDA-Public Use
  Company Number: US-ENDO PHARMACEUTICALS INC.-OPER20110224

PATIENT
  Sex: Male

DRUGS (1)
  1. OPANA ER [Suspect]
     Route: 048

REACTIONS (1)
  - DEATH [None]
